FAERS Safety Report 18125099 (Version 1)
Quarter: 2020Q3

REPORT INFORMATION
  Report Type: Spontaneous
  Country: CH (occurrence: CH)
  Receive Date: 20200807
  Receipt Date: 20200807
  Transmission Date: 20201103
  Serious: Yes (Life-Threatening, Hospitalization)
  Sender: FDA-Public Use
  Company Number: CH-009507513-2007CHE011257

PATIENT
  Age: 79 Year
  Sex: Female
  Weight: 79 kg

DRUGS (11)
  1. SYMBICORT [Concomitant]
     Active Substance: BUDESONIDE\FORMOTEROL FUMARATE DIHYDRATE
     Dosage: 2 SEPARATED DOSES; INGREDIENT (BUDESONIDE): 200MICROG; INGREDIENT (FORMOTEROL FUMARATE): 6MICROG
     Route: 055
  2. QUETIAPINE FUMARATE. [Concomitant]
     Active Substance: QUETIAPINE FUMARATE
     Dosage: RESUMED AS OF 10?JUL?2020; ADDITIONAL INFO: ROUTE: ORAL
     Route: 048
     Dates: end: 20200702
  3. THIAMINE HYDROCHLORIDE. [Concomitant]
     Active Substance: THIAMINE HYDROCHLORIDE
     Dosage: ADDITIONAL INFO: ROUTE: ORAL
     Route: 048
  4. FENTANYL. [Concomitant]
     Active Substance: FENTANYL
     Dosage: INSTEAD HYDROMORPHONE HYDROCHLORIDE (PALLADONE) SUSTAINED?RELEASE ON 10?JUL?2020 AND ON 17?JUL?2020
     Route: 003
     Dates: end: 20200702
  5. ELIQUIS [Suspect]
     Active Substance: APIXABAN
     Dosage: ADDITIONAL INFO: ROUTE: ORAL
     Route: 048
     Dates: start: 20200520, end: 20200702
  6. INVANZ [Suspect]
     Active Substance: ERTAPENEM SODIUM
     Dosage: INGREDIENT (ERTAPENEM SODIUM): 1G; ADDITIONAL INFO: ROUTE: INTRAVENOUS
     Route: 042
     Dates: start: 20200526, end: 20200602
  7. DIPIPERON [Concomitant]
     Active Substance: PIPAMPERONE
     Dosage: STOPPED ON 02?JUL?2020 (INCIDENTAL EVENT); ADDITIONAL INFO: ROUTE: ORAL
     Route: 048
     Dates: end: 20200702
  8. MINOCIN [Suspect]
     Active Substance: MINOCYCLINE HYDROCHLORIDE
     Dosage: INGREDIENT (MINOCYCLINE HYDROCHLORIDE): 50MG; ADDITIONAL INFO: ROUTE: ORAL
     Route: 048
     Dates: start: 20200526, end: 20200702
  9. BRINTELLIX [Suspect]
     Active Substance: VORTIOXETINE HYDROBROMIDE
     Indication: DEPRESSION
     Dosage: ADDITIONAL INFO: ROUTE: ORAL
     Route: 048
     Dates: start: 20200516, end: 20200702
  10. CITALOPRAM [Concomitant]
     Active Substance: CITALOPRAM HYDROBROMIDE
     Dosage: ESCITALOPRAM INSTEAD AS OF 18?JUL?2020; ADDITIONAL INFO: ROUTE: ORAL
     Route: 048
     Dates: end: 20200702
  11. VALVERDE CONSTIPATION SYRUP [Concomitant]

REACTIONS (1)
  - Drug-induced liver injury [Recovering/Resolving]

NARRATIVE: CASE EVENT DATE: 20200702
